FAERS Safety Report 25941034 (Version 1)
Quarter: 2025Q4

REPORT INFORMATION
  Report Type: Spontaneous
  Country: GB (occurrence: None)
  Receive Date: 20251018
  Receipt Date: 20251018
  Transmission Date: 20260117
  Serious: Yes (Hospitalization)
  Sender: FDA-CTU
  Company Number: None

PATIENT
  Age: 56 Year
  Sex: Female
  Weight: 66 kg

DRUGS (3)
  1. SERTRALINE [Suspect]
     Active Substance: SERTRALINE HYDROCHLORIDE
     Indication: Post-acute COVID-19 syndrome
     Route: 048
     Dates: start: 20220402, end: 20220423
  2. SERTRALINE [Suspect]
     Active Substance: SERTRALINE HYDROCHLORIDE
     Indication: Neurological symptom
  3. OMEPRAZOLE [Concomitant]
     Active Substance: OMEPRAZOLE

REACTIONS (4)
  - Dyspepsia [None]
  - Akathisia [None]
  - Suicidal ideation [None]
  - Suicide attempt [None]

NARRATIVE: CASE EVENT DATE: 20220402
